FAERS Safety Report 5206922-6 (Version None)
Quarter: 2007Q1

REPORT INFORMATION
  Report Type: 
  Country: None (occurrence: None)
  Receive Date: 20070105
  Receipt Date: 20070105
  Transmission Date: 20070707
  Serious: No
  Sender: FDA-Public Use
  Company Number: None

PATIENT
  Age: 40 Year
  Sex: Female
  Weight: 133.8111 kg

DRUGS (5)
  1. MORPHINE [Suspect]
     Indication: PAIN
     Dosage: VARIED, IV
     Route: 042
     Dates: start: 20061018, end: 20061019
  2. VENLAFAXINE HCL [Concomitant]
  3. CEFAZOLIN [Concomitant]
  4. APAP TAB [Concomitant]
  5. LANSOPRAZOLE [Concomitant]

REACTIONS (4)
  - LOSS OF CONSCIOUSNESS [None]
  - OXYGEN SATURATION DECREASED [None]
  - POST PROCEDURAL COMPLICATION [None]
  - RESPIRATORY RATE DECREASED [None]
